FAERS Safety Report 7574288-2 (Version None)
Quarter: 2011Q2

REPORT INFORMATION
  Report Type: 
  Country: None (occurrence: None)
  Receive Date: 20110627
  Receipt Date: 20110614
  Transmission Date: 20111010
  Serious: Yes (Other)
  Sender: FDA-Public Use
  Company Number: JP-JNJFOC-20110607476

PATIENT
  Sex: Male
  Weight: 54 kg

DRUGS (2)
  1. REMICADE [Suspect]
     Route: 042
     Dates: start: 20110303
  2. REMICADE [Suspect]
     Indication: PSORIASIS
     Dosage: PATIENT'S THIRD DOSE (3 DOSES TOTAL)
     Route: 042
     Dates: start: 20110414

REACTIONS (1)
  - MUSCULAR WEAKNESS [None]
